FAERS Safety Report 4630184-1 (Version None)
Quarter: 2005Q2

REPORT INFORMATION
  Report Type: 
  Country: None (occurrence: None)
  Receive Date: 20050406
  Receipt Date: 20050322
  Transmission Date: 20051028
  Serious: Yes (Hospitalization)
  Sender: FDA-Public Use
  Company Number: FR-SANOFI-SYNTHELABO-F01200500451

PATIENT
  Age: 52 Year
  Sex: Male

DRUGS (6)
  1. OXALIPLATIN - SOLUTION - 130 MG/M2 [Suspect]
     Indication: NON-SMALL CELL LUNG CANCER
     Dosage: 235 MG Q3W (CUMULATIVE DOSE:  1175 MG) INTRAVENOUS NOS
     Route: 042
     Dates: start: 20041130, end: 20041130
  2. GEMCITABINE - SOLUTION - 1250 MG/M2 [Suspect]
     Indication: NON-SMALL CELL LUNG CANCER
     Dosage: 2200 MG ON DAY 1 AND DAY 8, Q3W (CUMULATIVE DOSE:  15400 MG) INTRAVENOUS NOS
     Route: 042
     Dates: start: 20041207, end: 20041207
  3. VIVALAN (VILOXAZINE) [Concomitant]
  4. LYSANXIA (PRAZEPAM) [Concomitant]
  5. BEFIZAL (BEZAFIBRATE) [Concomitant]
  6. KETOPROFEN [Concomitant]

REACTIONS (3)
  - HEPATIC STEATOSIS [None]
  - HEPATITIS ALCOHOLIC [None]
  - PELIOSIS HEPATIS [None]
